FAERS Safety Report 7979363-6 (Version None)
Quarter: 2011Q4

REPORT INFORMATION
  Report Type: 
  Country: None (occurrence: None)
  Receive Date: 20111214
  Receipt Date: 20111206
  Transmission Date: 20120403
  Serious: Yes (Life-Threatening, Other)
  Sender: FDA-Public Use
  Company Number: TH-JNJFOC-20111204677

PATIENT
  Age: 54 Year
  Sex: Female

DRUGS (2)
  1. IFOSFAMIDE [Suspect]
     Indication: MALIGNANT FIBROUS HISTIOCYTOMA
     Route: 065
  2. DOXORUBICIN HCL [Suspect]
     Indication: MALIGNANT FIBROUS HISTIOCYTOMA
     Route: 042

REACTIONS (1)
  - METASTASES TO BONE [None]
